FAERS Safety Report 18450624 (Version 1)
Quarter: 2020Q4

REPORT INFORMATION
  Report Type: Spontaneous
  Country: US (occurrence: US)
  Receive Date: 20201102
  Receipt Date: 20201102
  Transmission Date: 20210114
  Serious: No
  Sender: FDA-Public Use
  Company Number: US-JNJFOC-20201051214

PATIENT
  Age: 49 Year
  Sex: Female
  Weight: 55.39 kg

DRUGS (1)
  1. WOMENS ROGAINE UNSCENTED [Suspect]
     Active Substance: MINOXIDIL
     Indication: DIFFUSE ALOPECIA
     Dosage: HALF A CAPFUL ONCE A DAY
     Route: 061
     Dates: start: 202006

REACTIONS (2)
  - Product use in unapproved indication [Unknown]
  - Alopecia [Unknown]

NARRATIVE: CASE EVENT DATE: 2020
